FAERS Safety Report 6075012-5 (Version None)
Quarter: 2009Q1

REPORT INFORMATION
  Report Type: 
  Country: None (occurrence: None)
  Receive Date: 20090210
  Receipt Date: 20081121
  Transmission Date: 20090719
  Serious: Yes (Hospitalization)
  Sender: FDA-Public Use
  Company Number: 20633

PATIENT
  Age: 50 Year
  Sex: Male

DRUGS (3)
  1. LEUCOVORIN CALCIUM [Suspect]
     Indication: METASTATIC NEOPLASM
  2. FLUOROURACIL [Suspect]
     Indication: METASTATIC NEOPLASM
  3. OXALIPLATIN [Suspect]
     Indication: METASTATIC NEOPLASM

REACTIONS (2)
  - HYPERSENSITIVITY [None]
  - LOSS OF CONSCIOUSNESS [None]
